FAERS Safety Report 25148124 (Version 1)
Quarter: 2025Q2

REPORT INFORMATION
  Report Type: Spontaneous
  Country: FR (occurrence: FR)
  Receive Date: 20250402
  Receipt Date: 20250402
  Transmission Date: 20250716
  Serious: Yes (Death, Hospitalization, Other)
  Sender: CELLTRION
  Company Number: FR-ROCHE-10000092679

PATIENT

DRUGS (12)
  1. BEVACIZUMAB [Suspect]
     Active Substance: BEVACIZUMAB
     Indication: Lung neoplasm malignant
     Route: 065
     Dates: start: 20240705, end: 20240726
  2. ATEZOLIZUMAB [Concomitant]
     Active Substance: ATEZOLIZUMAB
     Indication: Lung neoplasm malignant
     Route: 065
     Dates: start: 20240705, end: 20240726
  3. PACLITAXEL [Concomitant]
     Active Substance: PACLITAXEL
     Indication: Lung neoplasm malignant
     Route: 065
     Dates: start: 20240705, end: 20240705
  4. KARDEGIC [Concomitant]
     Active Substance: ASPIRIN DL-LYSINE
  5. MIRTAZAPINE [Concomitant]
     Active Substance: MIRTAZAPINE
  6. NICARDIPINE HYDROCHLORIDE [Concomitant]
     Active Substance: NICARDIPINE HYDROCHLORIDE
  7. PANTOPRAZOLE [Concomitant]
     Active Substance: PANTOPRAZOLE
  8. ENTECAVIR [Concomitant]
     Active Substance: ENTECAVIR
  9. TERBUTALINE [Concomitant]
     Active Substance: TERBUTALINE
  10. ZOPICLONE AB [Concomitant]
  11. BISOPROLOL [Concomitant]
     Active Substance: BISOPROLOL
  12. AMIODARONE [Concomitant]
     Active Substance: AMIODARONE

REACTIONS (3)
  - Respiratory distress [Fatal]
  - Nervous system disorder [Fatal]
  - Septic shock [Fatal]

NARRATIVE: CASE EVENT DATE: 20240807
